FAERS Safety Report 22058414 (Version 1)
Quarter: 2023Q1

REPORT INFORMATION
  Report Type: Spontaneous
  Country: JO (occurrence: JO)
  Receive Date: 20230303
  Receipt Date: 20230303
  Transmission Date: 20230418
  Serious: Yes (Other)
  Sender: FDA-Public Use
  Company Number: JO-ASTELLAS-2023US006456

PATIENT
  Sex: Female

DRUGS (1)
  1. CRESEMBA [Suspect]
     Active Substance: ISAVUCONAZONIUM SULFATE
     Indication: Pneumonia fungal
     Route: 048

REACTIONS (2)
  - Adrenal insufficiency [Unknown]
  - Off label use [Unknown]

NARRATIVE: CASE EVENT DATE: 20230201
